FAERS Safety Report 25789319 (Version 2)
Quarter: 2025Q4

REPORT INFORMATION
  Report Type: Spontaneous
  Country: EU (occurrence: EU)
  Receive Date: 20250911
  Receipt Date: 20251003
  Transmission Date: 20260117
  Serious: Yes (Other)
  Sender: ASTELLAS
  Company Number: EU-ASTELLAS-2025-AER-049532

PATIENT
  Age: 65 Year
  Sex: Female
  Weight: 74 kg

DRUGS (2)
  1. CRESEMBA [Suspect]
     Active Substance: ISAVUCONAZONIUM SULFATE
     Indication: Aspergillus infection
     Route: 042
     Dates: start: 20240125, end: 20240304
  2. CRESEMBA [Suspect]
     Active Substance: ISAVUCONAZONIUM SULFATE
     Indication: Aspergillus infection
     Route: 048
     Dates: start: 20240304, end: 20250220

REACTIONS (3)
  - Aspergillus infection [Not Recovered/Not Resolved]
  - Disease progression [Not Recovered/Not Resolved]
  - Treatment failure [Unknown]
